FAERS Safety Report 13405320 (Version 2)
Quarter: 2017Q2

REPORT INFORMATION
  Report Type: Report from Study
  Country: US (occurrence: US)
  Receive Date: 20170405
  Receipt Date: 20170606
  Transmission Date: 20170830
  Serious: Yes (Other)
  Sender: FDA-Public Use
  Company Number: US-GILEAD-2016-0244777

PATIENT
  Age: 64 Year
  Sex: Female
  Weight: 61 kg

DRUGS (11)
  1. ATORVASTATIN [Concomitant]
     Active Substance: ATORVASTATIN
  2. AMBRISENTAN [Suspect]
     Active Substance: AMBRISENTAN
     Indication: CREST SYNDROME
  3. FUROSEMIDE. [Suspect]
     Active Substance: FUROSEMIDE
     Indication: PRODUCT USED FOR UNKNOWN INDICATION
     Dosage: UNK
     Route: 065
  4. AMBRISENTAN [Suspect]
     Active Substance: AMBRISENTAN
     Indication: SCLERODERMA
  5. TADALAFIL [Concomitant]
     Active Substance: TADALAFIL
  6. EPOPROSTENOL. [Concomitant]
     Active Substance: EPOPROSTENOL
  7. AMBRISENTAN [Suspect]
     Active Substance: AMBRISENTAN
     Indication: PULMONARY ARTERIAL HYPERTENSION
     Dosage: 10 MG, QD
     Route: 065
  8. ASA [Concomitant]
     Active Substance: ASPIRIN
  9. ADCIRCA [Concomitant]
     Active Substance: TADALAFIL
  10. VELETRI [Concomitant]
     Active Substance: EPOPROSTENOL
  11. SPIRONOLACTONE. [Concomitant]
     Active Substance: SPIRONOLACTONE

REACTIONS (8)
  - Dehydration [Unknown]
  - Oropharyngeal pain [Unknown]
  - Cough [Unknown]
  - Viral upper respiratory tract infection [Unknown]
  - Dry throat [Unknown]
  - Asthenia [Unknown]
  - Blood iron decreased [Unknown]
  - Haemoglobin decreased [Recovering/Resolving]
